FAERS Safety Report 7749708-0 (Version None)
Quarter: 2011Q3

REPORT INFORMATION
  Report Type: 
  Country: None (occurrence: None)
  Receive Date: 20110914
  Receipt Date: 20110907
  Transmission Date: 20111222
  Serious: Yes (Death, Disabling, Other)
  Sender: FDA-Public Use
  Company Number: JP-JNJFOC-20110506753

PATIENT
  Sex: Female

DRUGS (7)
  1. RISPERDAL [Suspect]
     Indication: SCHIZOPHRENIA
     Route: 048
     Dates: start: 20110101, end: 20110408
  2. SEROQUEL [Suspect]
     Indication: SCHIZOPHRENIA
     Route: 048
     Dates: start: 20110101, end: 20110408
  3. UNKNOWN MEDICATION [Suspect]
     Indication: PRODUCT USED FOR UNKNOWN INDICATION
     Route: 065
  4. ZONISAMIDE [Concomitant]
     Indication: CEREBRAL HAEMORRHAGE
     Route: 048
     Dates: end: 20110413
  5. UNASYN [Concomitant]
     Indication: PNEUMONIA
     Route: 042
     Dates: start: 20110329, end: 20110405
  6. ROCEPHIN [Concomitant]
     Indication: PNEUMONIA
     Route: 042
     Dates: start: 20110405, end: 20110413
  7. DIOVAN [Concomitant]
     Indication: HYPERTENSION
     Route: 048
     Dates: end: 20110413

REACTIONS (4)
  - HYPOGLYCAEMIA [None]
  - RENAL IMPAIRMENT [None]
  - HEPATIC FUNCTION ABNORMAL [None]
  - MULTI-ORGAN FAILURE [None]
